FAERS Safety Report 16998123 (Version 1)
Quarter: 2019Q4

REPORT INFORMATION
  Report Type: Spontaneous
  Country: US (occurrence: US)
  Receive Date: 20190924
  Receipt Date: 20190924
  Transmission Date: 20200122
  Serious: Yes (Hospitalization)
  Sender: FDA-Public Use
  Company Number: None

PATIENT
  Age: 42 Year
  Sex: Female

DRUGS (20)
  1. BETHANECHOL TAB [Concomitant]
  2. CLONAZEPAM TAB [Concomitant]
     Active Substance: CLONAZEPAM
  3. DECARA CAP [Concomitant]
  4. PROCHLORPER TAB [Concomitant]
  5. QUETIAPINE TAB [Concomitant]
  6. MOTRIN CHLD SUS [Concomitant]
  7. SUCRALFATE TAB [Concomitant]
  8. HUMIRA [Suspect]
     Active Substance: ADALIMUMAB
     Route: 058
  9. CYMBALTA CAP [Concomitant]
  10. STELARA [Concomitant]
     Active Substance: USTEKINUMAB
  11. TRAMADOL HCL TAB [Concomitant]
  12. PROPRANOLOL TAB [Concomitant]
  13. ABILIFY MAIN INJ 300MG [Concomitant]
  14. FOLIC ACID. [Concomitant]
     Active Substance: FOLIC ACID
  15. METHOTREXATE. [Concomitant]
     Active Substance: METHOTREXATE
  16. APAP/CODENE TAB [Concomitant]
  17. DULOXETINE CAP [Concomitant]
     Active Substance: DULOXETINE HYDROCHLORIDE
  18. LORAZEPAM. [Concomitant]
     Active Substance: LORAZEPAM
  19. CYCLOBENZAPR TAB [Concomitant]
  20. PREGABALIN CAP [Concomitant]
     Active Substance: PREGABALIN

REACTIONS (2)
  - Malaise [None]
  - Hernia [None]
